FAERS Safety Report 11150978 (Version 1)
Quarter: 2015Q2

REPORT INFORMATION
  Report Type: Report from Study
  Country: BR (occurrence: BR)
  Receive Date: 20150601
  Receipt Date: 20150601
  Transmission Date: 20150821
  Serious: Yes (Other)
  Sender: FDA-Public Use
  Company Number: BR-SA-2015SA003373

PATIENT
  Age: 48 Year
  Sex: Female
  Weight: 83 kg

DRUGS (5)
  1. DEVICE NOS [Concomitant]
     Active Substance: DEVICE
     Indication: DEVICE THERAPY
  2. LANTUS [Suspect]
     Active Substance: INSULIN GLARGINE
     Indication: BLOOD GLUCOSE ABNORMAL
     Dosage: DURATION : UNKNOWN
     Route: 065
     Dates: start: 201501, end: 20150205
  3. SYNTHROID [Concomitant]
     Active Substance: LEVOTHYROXINE SODIUM
     Indication: SURGERY
     Dosage: STRENGTH: 175 MCG
  4. ALDOMET [Concomitant]
     Active Substance: METHYLDOPA
     Indication: HYPERTENSION
     Dosage: STRENGTH: 500 MG
  5. MINERALS NOS/FOLIC ACID/VITAMINS NOS/IRON [Concomitant]

REACTIONS (2)
  - Exposure during pregnancy [Unknown]
  - Foetal distress syndrome [Unknown]

NARRATIVE: CASE EVENT DATE: 201502
